FAERS Safety Report 8305040-8 (Version None)
Quarter: 2012Q2

REPORT INFORMATION
  Report Type: 
  Country: None (occurrence: None)
  Receive Date: 20120423
  Receipt Date: 20120413
  Transmission Date: 20120825
  Serious: Yes (Other)
  Sender: FDA-Public Use
  Company Number: US-ROCHE-784150

PATIENT
  Sex: Female
  Weight: 54.48 kg

DRUGS (3)
  1. ACCUTANE [Suspect]
     Route: 065
     Dates: start: 19910614, end: 19911124
  2. ACCUTANE [Suspect]
     Route: 065
     Dates: start: 19960415, end: 19960515
  3. ACCUTANE [Suspect]
     Indication: ACNE
     Route: 065

REACTIONS (5)
  - COLITIS ULCERATIVE [None]
  - INTESTINAL HAEMORRHAGE [None]
  - INFLAMMATORY BOWEL DISEASE [None]
  - ANXIETY [None]
  - BLOOD CHOLESTEROL INCREASED [None]
